FAERS Safety Report 4331186-5 (Version None)
Quarter: 2004Q1

REPORT INFORMATION
  Report Type: 
  Country: None (occurrence: None)
  Receive Date: 20040331
  Receipt Date: 20040316
  Transmission Date: 20041129
  Serious: Yes (Hospitalization)
  Sender: FDA-Public Use
  Company Number: AU_020404981

PATIENT
  Age: 10 Year
  Sex: Male
  Weight: 39 kg

DRUGS (8)
  1. ATOMOXETINE HYDROCHLORIDE [Suspect]
     Indication: ATTENTION DEFICIT/HYPERACTIVITY DISORDER
     Dosage: 60 MG/DAY
     Dates: start: 20020321
  2. DEXCHLORPHENIRAMINE MALEATE [Concomitant]
  3. CATAPRES [Concomitant]
  4. HUMALOG [Concomitant]
  5. HUMULIN N [Concomitant]
  6. DYMADON (PARACETAMOL) [Concomitant]
  7. SUDAFED 12 HOUR [Concomitant]
  8. ACETAMINOPHEN [Concomitant]

REACTIONS (7)
  - BLOOD GLUCOSE INCREASED [None]
  - BLOOD KETONE BODY PRESENT [None]
  - DIABETES MELLITUS INADEQUATE CONTROL [None]
  - DIARRHOEA [None]
  - LARGE INTESTINAL HAEMORRHAGE [None]
  - PYREXIA [None]
  - VOMITING [None]
